FAERS Safety Report 10884967 (Version 1)
Quarter: 2015Q1

REPORT INFORMATION
  Report Type: Spontaneous
  Country: US (occurrence: None)
  Receive Date: 20150227
  Receipt Date: 20150227
  Transmission Date: 20150721
  Serious: Yes (Hospitalization)
  Sender: FDA-Public Use
  Company Number: None

PATIENT
  Age: 71 Year
  Sex: Female
  Weight: 77.11 kg

DRUGS (9)
  1. XARELTO [Suspect]
     Active Substance: RIVAROXABAN
     Indication: POSTOPERATIVE THROMBOSIS
     Dosage: 1 PILL
     Route: 048
     Dates: start: 20140811, end: 20140819
  2. XARELTO [Suspect]
     Active Substance: RIVAROXABAN
     Indication: PROPHYLAXIS
     Dosage: 1 PILL
     Route: 048
     Dates: start: 20140811, end: 20140819
  3. TOPROL XL [Concomitant]
     Active Substance: METOPROLOL SUCCINATE
  4. TRAMADOL [Concomitant]
     Active Substance: TRAMADOL
  5. OMEPRAZOLE. [Concomitant]
     Active Substance: OMEPRAZOLE
  6. VITAMIN D3 [Concomitant]
     Active Substance: CHOLECALCIFEROL
  7. LIPITOR [Concomitant]
     Active Substance: ATORVASTATIN CALCIUM
  8. TRIAMTERENE AND HYDROCHLOROTHIAZIDE [Concomitant]
     Active Substance: HYDROCHLOROTHIAZIDE\TRIAMTERENE
  9. CALCIUM [Concomitant]
     Active Substance: CALCIUM

REACTIONS (6)
  - Pyrexia [None]
  - Skin exfoliation [None]
  - Blister [None]
  - Decreased appetite [None]
  - Dyspnoea [None]
  - Insomnia [None]

NARRATIVE: CASE EVENT DATE: 20140811
